FAERS Safety Report 5892148-X (Version None)
Quarter: 2008Q3

REPORT INFORMATION
  Report Type: 
  Country: None (occurrence: None)
  Receive Date: 20080908
  Receipt Date: 20080529
  Transmission Date: 20090109
  Serious: No
  Sender: FDA-Public Use
  Company Number: 002#2#2008-00468

PATIENT
  Age: 71 Year
  Sex: Female
  Weight: 102.0593 kg

DRUGS (8)
  1. NEUPRO [Suspect]
     Indication: PARKINSON'S DISEASE
     Dosage: 2MG/24H, 1 IN 1 D, TRANSDERMAL
     Route: 062
     Dates: start: 20080101
  2. PROVIGIL [Concomitant]
  3. SIMVASTATIN [Concomitant]
  4. ATACAND [Concomitant]
  5. FUROSEMIDE [Concomitant]
  6. SYNTHROID [Concomitant]
  7. SERTRALINE [Concomitant]
  8. POTASSIUM CHLORIDE [Concomitant]

REACTIONS (5)
  - APPLICATION SITE BLEEDING [None]
  - APPLICATION SITE PRURITUS [None]
  - APPLICATION SITE RASH [None]
  - APPLICATION SITE REACTION [None]
  - RASH GENERALISED [None]
